FAERS Safety Report 15959519 (Version 1)
Quarter: 2019Q1

REPORT INFORMATION
  Report Type: Spontaneous
  Country: FR (occurrence: FR)
  Receive Date: 20190214
  Receipt Date: 20190214
  Transmission Date: 20190417
  Serious: Yes (Hospitalization)
  Sender: FDA-Public Use
  Company Number: FR-ACCORD-106985

PATIENT
  Age: 65 Year
  Sex: Male

DRUGS (7)
  1. NEULASTA [Concomitant]
     Active Substance: PEGFILGRASTIM
  2. FLUOROURACIL ACCORD [Suspect]
     Active Substance: FLUOROURACIL
     Indication: OROPHARYNGEAL CANCER
     Dosage: STRENGTH : 50 MG /ML
     Route: 042
     Dates: start: 20180531, end: 20180531
  3. DAFALGAN CODEINE [Concomitant]
     Active Substance: ACETAMINOPHEN\CODEINE PHOSPHATE
  4. ALLOPURINOL. [Concomitant]
     Active Substance: ALLOPURINOL
  5. DOCETAXEL HOSPIRA [Suspect]
     Active Substance: DOCETAXEL
     Indication: OROPHARYNGEAL CANCER
     Dosage: STRENGTH :  10 MG / ML
     Route: 042
     Dates: start: 20180531, end: 20180531
  6. SOLUPRED (PREDNISOLONE) [Suspect]
     Active Substance: PREDNISOLONE
     Indication: PREMEDICATION
     Route: 048
     Dates: start: 20180530, end: 20180601
  7. CISPLATIN ACCORD [Suspect]
     Active Substance: CISPLATIN
     Indication: OROPHARYNGEAL CANCER
     Dosage: STRENGTH : 1 MG/ ML
     Route: 042
     Dates: start: 20180531, end: 20180531

REACTIONS (2)
  - Generalised oedema [Recovered/Resolved]
  - Fluid retention [None]

NARRATIVE: CASE EVENT DATE: 20180603
